FAERS Safety Report 9314011 (Version 3)
Quarter: 2013Q3

REPORT INFORMATION
  Report Type: Report from Study
  Country: AT (occurrence: AT)
  Receive Date: 20130529
  Receipt Date: 20130729
  Transmission Date: 20140515
  Serious: Yes (Hospitalization)
  Sender: FDA-Public Use
  Company Number: AT-CELGENEUS-009-C5013-13040734

PATIENT
  Age: 77 Year
  Sex: Male
  Weight: 71.5 kg

DRUGS (10)
  1. CC-5013 [Suspect]
     Indication: REFRACTORY ANAEMIA WITH AN EXCESS OF BLASTS
     Dosage: 10 MILLIGRAM
     Route: 048
     Dates: start: 20120521
  2. CC-5013 [Suspect]
     Dosage: 5 MILLIGRAM
     Route: 048
     Dates: start: 20130402
  3. CC-5013 [Suspect]
     Dosage: 5 MILLIGRAM
     Route: 048
     Dates: start: 20120820, end: 20130422
  4. CONCOR [Concomitant]
     Indication: CARDIAC FAILURE
     Dosage: 1.25 MILLIGRAM
     Route: 048
  5. LASILACTONE [Concomitant]
     Indication: OEDEMA
     Dosage: 20/50
     Route: 048
     Dates: start: 20130513
  6. LASIX [Concomitant]
     Indication: OEDEMA
     Route: 048
  7. EXJADE [Concomitant]
     Indication: IRON OVERLOAD
     Dosage: 500 MILLIGRAM
     Route: 048
  8. TEMESTA [Concomitant]
     Indication: INSOMNIA
     Route: 048
  9. PRADAXOL [Concomitant]
     Indication: THROMBOSIS
     Dosage: 220 MILLIGRAM
     Route: 065
     Dates: start: 20130405, end: 20130504
  10. ALNA [Concomitant]
     Indication: BENIGN PROSTATIC HYPERPLASIA
     Route: 048

REACTIONS (2)
  - Adenocarcinoma of colon [Recovered/Resolved with Sequelae]
  - Pneumonia [Recovered/Resolved]
